FAERS Safety Report 4983135-4 (Version None)
Quarter: 2006Q2

REPORT INFORMATION
  Report Type: 
  Country: None (occurrence: None)
  Receive Date: 20060426
  Receipt Date: 20040428
  Transmission Date: 20061013
  Serious: Yes (Hospitalization)
  Sender: FDA-Public Use
  Company Number: 2004SE02404

PATIENT
  Age: 20914 Day
  Sex: Male
  Weight: 73 kg

DRUGS (25)
  1. TCV-116 [Suspect]
     Indication: DIABETIC NEPHROPATHY
     Route: 048
     Dates: start: 20040228, end: 20040322
  2. TCV-116 [Suspect]
     Route: 048
     Dates: start: 20040323, end: 20040407
  3. TCV-116 [Suspect]
     Route: 048
     Dates: start: 20040410
  4. SELECTOL [Concomitant]
     Indication: HYPERTENSION
     Route: 048
     Dates: start: 20021002, end: 20040407
  5. SELECTOL [Concomitant]
     Route: 048
     Dates: start: 20040415
  6. ZYLORIC [Concomitant]
     Indication: GOUT
     Route: 048
     Dates: start: 20021002, end: 20040407
  7. ZYLORIC [Concomitant]
     Route: 048
     Dates: start: 20040408
  8. ISOSORBIDE MONONITRATE [Concomitant]
     Indication: PROPHYLAXIS
     Route: 048
     Dates: start: 20021002, end: 20040407
  9. ISOSORBIDE MONONITRATE [Concomitant]
     Route: 048
     Dates: start: 20040408
  10. CARDENALIN [Concomitant]
     Indication: HYPERTENSION
     Route: 048
     Dates: start: 20040119, end: 20040407
  11. CARDENALIN [Concomitant]
     Route: 048
     Dates: start: 20040415
  12. ADALAT [Concomitant]
     Indication: HYPERTENSION
     Route: 048
     Dates: start: 20040218, end: 20040407
  13. ADALAT [Concomitant]
     Route: 048
     Dates: start: 20040415
  14. NATRIX [Concomitant]
     Indication: HYPERTENSION
     Route: 048
     Dates: start: 20040218, end: 20040407
  15. NATRIX [Concomitant]
     Route: 048
     Dates: start: 20040415
  16. GASTER [Concomitant]
     Indication: GASTRIC ULCER
     Route: 048
     Dates: start: 20040119, end: 20040407
  17. GASTER [Concomitant]
     Route: 048
     Dates: start: 20040408
  18. ADALAT [Concomitant]
     Indication: HYPERTENSION
     Route: 048
     Dates: start: 20040323
  19. AMARYL [Concomitant]
     Indication: DIABETES MELLITUS NON-INSULIN-DEPENDENT
     Route: 048
     Dates: start: 20040323, end: 20040407
  20. AMARYL [Concomitant]
     Route: 048
     Dates: start: 20040408
  21. NOVORAPID [Concomitant]
     Indication: DIABETES MELLITUS NON-INSULIN-DEPENDENT
     Route: 042
     Dates: start: 20040228, end: 20040407
  22. NOVORAPID [Concomitant]
     Route: 042
     Dates: start: 20040408, end: 20040417
  23. NOVORAPID [Concomitant]
     Route: 042
     Dates: start: 20040418
  24. EUGLUCON [Concomitant]
     Indication: DIABETES MELLITUS NON-INSULIN-DEPENDENT
     Route: 048
     Dates: end: 20040322
  25. CONIEL [Concomitant]
     Indication: HYPERTENSION
     Route: 048
     Dates: start: 20021003, end: 20040218

REACTIONS (7)
  - BLOOD PRESSURE INCREASED [None]
  - BRAIN STEM INFARCTION [None]
  - CEREBRAL INFARCTION [None]
  - DYSLALIA [None]
  - GLYCOSYLATED HAEMOGLOBIN INCREASED [None]
  - HYPOGLYCAEMIA [None]
  - MONOPARESIS [None]
